FAERS Safety Report 11123734 (Version 1)
Quarter: 2015Q2

REPORT INFORMATION
  Report Type: Spontaneous
  Country: BE (occurrence: BE)
  Receive Date: 20150519
  Receipt Date: 20150519
  Transmission Date: 20150821
  Serious: Yes (Other)
  Sender: FDA-Public Use
  Company Number: BE-ELI_LILLY_AND_COMPANY-BE201411011311

PATIENT
  Age: 57 Year
  Sex: Male

DRUGS (2)
  1. CLOPIXOL                           /00876703/ [Concomitant]
     Indication: PRODUCT USED FOR UNKNOWN INDICATION
     Dosage: 150 MG, UNKNOWN
     Route: 065
  2. ZYPADHERA [Suspect]
     Active Substance: OLANZAPINE PAMOATE
     Indication: SCHIZOPHRENIA
     Dosage: 300 MG, MONTHLY (1/M)
     Route: 030

REACTIONS (8)
  - Bronchitis [Unknown]
  - Somnolence [Recovered/Resolved]
  - Sedation [Recovered/Resolved]
  - Poor quality sleep [Recovered/Resolved]
  - Lobar pneumonia [Unknown]
  - Carboxyhaemoglobin increased [Unknown]
  - Blood glucose increased [Unknown]
  - Fatigue [Recovered/Resolved]

NARRATIVE: CASE EVENT DATE: 2011
